FAERS Safety Report 4453929-2 (Version None)
Quarter: 2004Q3

REPORT INFORMATION
  Report Type: 
  Country: None (occurrence: None)
  Receive Date: 20040826
  Receipt Date: 20040430
  Transmission Date: 20050211
  Serious: No
  Sender: FDA-Public Use
  Company Number: WAES 0404USA01302

PATIENT
  Age: 45 Year
  Sex: Female
  Weight: 122.4712 kg

DRUGS (8)
  1. ZETIA [Suspect]
     Dosage: 10 MG/DAILY/PO
     Route: 048
     Dates: start: 20040331, end: 20040412
  2. AMARYL [Concomitant]
  3. CARDIZEM CD [Concomitant]
  4. COZAAR [Concomitant]
  5. HYDRODIURIL [Concomitant]
  6. PROZAC [Concomitant]
  7. ZESTRIL [Concomitant]
  8. ATENOLOL [Concomitant]

REACTIONS (2)
  - ASTHMA [None]
  - URTICARIA [None]
